FAERS Safety Report 26154879 (Version 1)
Quarter: 2025Q4

REPORT INFORMATION
  Report Type: Spontaneous
  Country: JP (occurrence: JP)
  Receive Date: 20251215
  Receipt Date: 20251215
  Transmission Date: 20260117
  Serious: Yes (Hospitalization, Other)
  Sender: SANOFI AVENTIS
  Company Number: JP-SAKK-2025SA366398AA

PATIENT
  Age: 46 Year
  Sex: Female

DRUGS (2)
  1. TAXOTERE [Suspect]
     Active Substance: DOCETAXEL
     Indication: Invasive ductal breast carcinoma
     Dosage: UNK
     Route: 041
  2. PHESGO [Suspect]
     Active Substance: HYALURONIDASE-ZZXF\PERTUZUMAB\TRASTUZUMAB
     Indication: Invasive ductal breast carcinoma
     Route: 058

REACTIONS (5)
  - Deep vein thrombosis [Recovering/Resolving]
  - Swelling [Recovering/Resolving]
  - Groin pain [Recovering/Resolving]
  - Pulmonary embolism [Recovering/Resolving]
  - Pyrexia [Recovering/Resolving]
